FAERS Safety Report 16430163 (Version 1)
Quarter: 2019Q2

REPORT INFORMATION
  Report Type: Spontaneous
  Country: US (occurrence: US)
  Receive Date: 20190614
  Receipt Date: 20190614
  Transmission Date: 20190711
  Serious: No
  Sender: FDA-Public Use
  Company Number: None

PATIENT
  Age: 24 Year
  Sex: Male
  Weight: 58.5 kg

DRUGS (1)
  1. SUPERIOR RED DRAGON KRATOM [Suspect]
     Active Substance: HERBALS\MITRAGYNINE

REACTIONS (9)
  - Suspected product contamination [None]
  - Anxiety [None]
  - Adulterated product [None]
  - Chest pain [None]
  - Heart rate increased [None]
  - Agitation [None]
  - Nausea [None]
  - Dysgeusia [None]
  - Vomiting [None]

NARRATIVE: CASE EVENT DATE: 20190609
